FAERS Safety Report 12273509 (Version 1)
Quarter: 2016Q2

REPORT INFORMATION
  Report Type: Spontaneous
  Country: US (occurrence: US)
  Receive Date: 20160415
  Receipt Date: 20160415
  Transmission Date: 20160815
  Serious: No
  Sender: FDA-Public Use
  Company Number: US-PFIZER INC-2016175801

PATIENT
  Sex: Female

DRUGS (1)
  1. ADVIL [Suspect]
     Active Substance: IBUPROFEN
     Indication: ROTATOR CUFF SYNDROME
     Dosage: UNK (2-3 ADVIL LIQUIGELS ALMOST DAILY, OFF AND ON FOR 2 YEARS)

REACTIONS (2)
  - Intentional product use issue [Unknown]
  - Blood glucose increased [Unknown]
